FAERS Safety Report 6280739-6 (Version None)
Quarter: 2009Q3

REPORT INFORMATION
  Report Type: 
  Country: None (occurrence: None)
  Receive Date: 20090724
  Receipt Date: 20081218
  Transmission Date: 20100115
  Serious: Yes (Hospitalization)
  Sender: FDA-Public Use
  Company Number: A0761077A

PATIENT
  Sex: Female

DRUGS (8)
  1. AVANDIA [Suspect]
     Dosage: 4MG PER DAY
     Route: 048
     Dates: start: 20070101
  2. SYNTHROID [Concomitant]
  3. METOPROLOL SUCCINATE [Concomitant]
  4. NEXIUM [Concomitant]
  5. LEXAPRO [Concomitant]
  6. ELAVIL [Concomitant]
  7. ALLOPURINOL [Concomitant]
  8. XANAX [Concomitant]

REACTIONS (1)
  - BLOOD GLUCOSE INCREASED [None]
